FAERS Safety Report 6141200-2 (Version None)
Quarter: 2009Q2

REPORT INFORMATION
  Report Type: 
  Country: None (occurrence: None)
  Receive Date: 20090402
  Receipt Date: 20090326
  Transmission Date: 20091009
  Serious: Yes (Other)
  Sender: FDA-Public Use
  Company Number: US-BAYER-200916600NA

PATIENT
  Age: 56 Year
  Sex: Female

DRUGS (2)
  1. ULTRAVIST (PHARMACY BULK) [Suspect]
     Indication: COMPUTERISED TOMOGRAM ABDOMEN
     Dosage: TOTAL DAILY DOSE: 100 ML  UNIT DOSE: 500 ML
     Route: 042
     Dates: start: 20090325, end: 20090325
  2. CONTRAST MEDIA [Concomitant]
     Route: 048
     Dates: start: 20090325, end: 20090325

REACTIONS (4)
  - FEELING HOT [None]
  - MALAISE [None]
  - SWELLING FACE [None]
  - SWOLLEN TONGUE [None]
